FAERS Safety Report 24363161 (Version 1)
Quarter: 2024Q3

REPORT INFORMATION
  Report Type: Spontaneous
  Country: DZ (occurrence: DZ)
  Receive Date: 20240925
  Receipt Date: 20240925
  Transmission Date: 20241016
  Serious: Yes (Hospitalization)
  Sender: BAYER
  Company Number: DZ-BAYER-2024A133253

PATIENT
  Age: 50 Year
  Sex: Male

DRUGS (5)
  1. STIVARGA [Suspect]
     Active Substance: REGORAFENIB MONOHYDRATE
     Indication: Adenocarcinoma of colon
     Dosage: 80 MG, QD
     Dates: start: 20240710
  2. STIVARGA [Suspect]
     Active Substance: REGORAFENIB MONOHYDRATE
     Indication: Adenocarcinoma of colon
     Dosage: 120 MG, QD
  3. STIVARGA [Suspect]
     Active Substance: REGORAFENIB MONOHYDRATE
     Indication: Adenocarcinoma of colon
     Dosage: 160 MG, QD
  4. STIVARGA [Suspect]
     Active Substance: REGORAFENIB MONOHYDRATE
     Indication: Adenocarcinoma of colon
     Dosage: 120 MG, QD
  5. STIVARGA [Suspect]
     Active Substance: REGORAFENIB MONOHYDRATE
     Indication: Adenocarcinoma of colon
     Dosage: 80 MG, QD
     Dates: end: 20240811

REACTIONS (2)
  - Dyspnoea [Recovered/Resolved with Sequelae]
  - Off label use [None]

NARRATIVE: CASE EVENT DATE: 20240724
